FAERS Safety Report 7594528-3 (Version None)
Quarter: 2011Q2

REPORT INFORMATION
  Report Type: 
  Country: None (occurrence: None)
  Receive Date: 20110628
  Receipt Date: 20110621
  Transmission Date: 20111010
  Serious: Yes (Hospitalization)
  Sender: FDA-Public Use
  Company Number: 2011CP000116

PATIENT
  Sex: Female

DRUGS (2)
  1. TYLENOL-500 [Concomitant]
  2. OFIRMEV [Suspect]
     Indication: PRODUCT USED FOR UNKNOWN INDICATION
     Dosage: 4000MG;IV
     Route: 042

REACTIONS (12)
  - ACUTE MYOCARDIAL INFARCTION [None]
  - HYPOTENSION [None]
  - ASPARTATE AMINOTRANSFERASE INCREASED [None]
  - RHABDOMYOLYSIS [None]
  - LIVER INJURY [None]
  - CONFUSIONAL STATE [None]
  - LETHARGY [None]
  - OVERDOSE [None]
  - ENCEPHALOPATHY [None]
  - RENAL FAILURE ACUTE [None]
  - ALANINE AMINOTRANSFERASE INCREASED [None]
  - ANALGESIC DRUG LEVEL INCREASED [None]
